FAERS Safety Report 8552275-5 (Version None)
Quarter: 2012Q3

REPORT INFORMATION
  Report Type: 
  Country: None (occurrence: None)
  Receive Date: 20120731
  Receipt Date: 20120717
  Transmission Date: 20120928
  Serious: Yes (Other)
  Sender: FDA-Public Use
  Company Number: JP-EISAI INC-E2090-02220-SPO-JP

PATIENT
  Age: 46 Year
  Sex: Female

DRUGS (2)
  1. ZONISAMIDE [Suspect]
     Indication: EPILEPSY
     Dosage: UNKNOWN
     Route: 048
  2. ZONISAMIDE [Suspect]
     Dosage: UNKNOWN
     Route: 048

REACTIONS (2)
  - EOSINOPHILIC PNEUMONIA [None]
  - DRUG RASH WITH EOSINOPHILIA AND SYSTEMIC SYMPTOMS [None]
